FAERS Safety Report 20081616 (Version 2)
Quarter: 2022Q1

REPORT INFORMATION
  Report Type: Spontaneous
  Country: US (occurrence: US)
  Receive Date: 20211117
  Receipt Date: 20220203
  Transmission Date: 20220424
  Serious: Yes (Death, Hospitalization)
  Sender: FDA-Public Use
  Company Number: US-TEVA-2021-US-1979774

PATIENT
  Age: 59 Year
  Sex: Female

DRUGS (12)
  1. HYDROCHLOROTHIAZIDE\VALSARTAN [Suspect]
     Active Substance: HYDROCHLOROTHIAZIDE\VALSARTAN
     Indication: Hypertension
     Dosage: 320-12.5 MG
     Route: 065
     Dates: start: 20130417, end: 20161122
  2. HYDROCHLOROTHIAZIDE\VALSARTAN [Suspect]
     Active Substance: HYDROCHLOROTHIAZIDE\VALSARTAN
     Indication: Hypertension
     Dosage: 320-12.5 MG
     Route: 065
     Dates: start: 20160607, end: 20160724
  3. VALSARTAN [Suspect]
     Active Substance: VALSARTAN
     Indication: Hypertension
     Dosage: 320 MG
     Route: 065
     Dates: start: 20161219, end: 20180927
  4. HYDROCHLOROTHIAZIDE\VALSARTAN [Suspect]
     Active Substance: HYDROCHLOROTHIAZIDE\VALSARTAN
     Indication: Hypertension
     Dosage: 320-12.5 MG
     Route: 065
     Dates: start: 20160802, end: 20161218
  5. LIPITOR [Concomitant]
     Active Substance: ATORVASTATIN CALCIUM
     Indication: Blood cholesterol increased
     Dosage: 40 MILLIGRAM DAILY;
     Route: 065
     Dates: start: 20160209, end: 20191020
  6. CHLORTHALIDONE [Concomitant]
     Active Substance: CHLORTHALIDONE
     Indication: Hypertension
     Dosage: 25 MILLIGRAM DAILY;
     Route: 065
     Dates: start: 20180928, end: 20191211
  7. LEVSIN [Concomitant]
     Active Substance: HYOSCYAMINE SULFATE
     Indication: Abdominal pain
     Dosage: EVERY 6 HOURS AS NEEDED
     Route: 065
     Dates: start: 20031211, end: 20190110
  8. FLONASE [Concomitant]
     Active Substance: FLUTICASONE PROPIONATE
     Indication: Hypersensitivity
     Dosage: 50 MCG/ACT SUSPENSION; TWO SPRAYS PER NOSTRIL
     Route: 065
     Dates: start: 20040820, end: 20190110
  9. XYZAL [Concomitant]
     Active Substance: LEVOCETIRIZINE DIHYDROCHLORIDE
     Indication: Hypersensitivity
     Dosage: 5 MILLIGRAM DAILY;
     Route: 065
     Dates: start: 20100604, end: 20190110
  10. SINGULAIR [Concomitant]
     Active Substance: MONTELUKAST SODIUM
     Indication: Hypersensitivity
     Dosage: 10 MILLIGRAM DAILY;
     Route: 048
     Dates: start: 20080531, end: 20190917
  11. VALTREX [Concomitant]
     Active Substance: VALACYCLOVIR HYDROCHLORIDE
     Indication: Oral disorder
     Dosage: 2 TAB Q12 HR X 1 DAY FOR OUTBREAK, DISCONTINUED; 1 TAB Q12 HRS X 2 DAY AS NEEDED FOR ORAL LESIONS
     Route: 065
     Dates: start: 20181207, end: 20190221
  12. VESICARE [Concomitant]
     Active Substance: SOLIFENACIN SUCCINATE
     Indication: Hypertonic bladder
     Dosage: 5 MILLIGRAM DAILY;
     Route: 065
     Dates: start: 20130102, end: 20150506

REACTIONS (4)
  - Colorectal cancer metastatic [Fatal]
  - Malignant mesenteric neoplasm [Unknown]
  - Intestinal metastasis [Unknown]
  - Metastatic neoplasm [Unknown]
